FAERS Safety Report 4840526-X (Version None)
Quarter: 2005Q4

REPORT INFORMATION
  Report Type: 
  Country: None (occurrence: None)
  Receive Date: 20051130
  Receipt Date: 20050919
  Transmission Date: 20060501
  Serious: Yes (Other)
  Sender: FDA-Public Use
  Company Number: US-BRISTOL-MYERS SQUIBB COMPANY-13115027

PATIENT
  Age: 46 Year
  Sex: Female

DRUGS (3)
  1. ERBITUX [Suspect]
     Indication: COLON CANCER METASTATIC
     Dosage: INITIATED ON 08-AUG-2005.
     Route: 042
     Dates: start: 20050903, end: 20050903
  2. TARCEVA [Suspect]
     Dates: start: 20050215
  3. XELODA [Concomitant]

REACTIONS (1)
  - RASH [None]
